FAERS Safety Report 5457038-5 (Version None)
Quarter: 2007Q3

REPORT INFORMATION
  Report Type: 
  Country: None (occurrence: None)
  Receive Date: 20070918
  Receipt Date: 20061220
  Transmission Date: 20080115
  Serious: No
  Sender: FDA-Public Use
  Company Number: US-ASTRAZENECA-2006UW28294

PATIENT

DRUGS (6)
  1. SEROQUEL [Suspect]
     Route: 048
  2. WELLBUTRIN [Concomitant]
     Dates: start: 19920101
  3. ANTIDEPRESSANTS [Concomitant]
     Dates: start: 19810101
  4. CHOLESTEROL-LOWERING DRUG [Concomitant]
     Dates: start: 20060601
  5. SYNTHROID [Concomitant]
     Dates: start: 19910101
  6. NEXIUM [Concomitant]
     Dates: start: 20010101

REACTIONS (3)
  - BIPOLAR I DISORDER [None]
  - GASTROOESOPHAGEAL REFLUX DISEASE [None]
  - VOMITING [None]
